FAERS Safety Report 10186209 (Version 2)
Quarter: 2014Q2

REPORT INFORMATION
  Report Type: Spontaneous
  Country: ES (occurrence: ES)
  Receive Date: 20140521
  Receipt Date: 20140521
  Transmission Date: 20141212
  Serious: Yes (Other)
  Sender: FDA-Public Use
  Company Number: ES-GLAXOSMITHKLINE-B0703733A

PATIENT
  Age: 47 Year
  Sex: Male

DRUGS (3)
  1. LAMOTRIGINE [Suspect]
     Indication: EPILEPSY
     Dosage: 100MG TWICE PER DAY
     Route: 065
  2. PHENYTOIN [Suspect]
     Indication: EPILEPSY
     Dosage: 100MG THREE TIMES PER DAY
     Route: 065
  3. LEVETIRACETAM [Concomitant]
     Route: 065

REACTIONS (7)
  - Tubulointerstitial nephritis [Recovered/Resolved]
  - Nausea [Unknown]
  - Vomiting [Unknown]
  - Renal pain [Unknown]
  - Oliguria [Unknown]
  - Renal failure [Recovered/Resolved]
  - Hepatic failure [Recovered/Resolved]
